FAERS Safety Report 4500572-2 (Version None)
Quarter: 2004Q4

REPORT INFORMATION
  Report Type: 
  Country: None (occurrence: None)
  Receive Date: 20041115
  Receipt Date: 20041102
  Transmission Date: 20050328
  Serious: Yes (Other)
  Sender: FDA-Public Use
  Company Number: US-JNJFOC-20040300764

PATIENT
  Sex: Female
  Weight: 68.04 kg

DRUGS (24)
  1. REMICADE [Suspect]
     Route: 042
  2. REMICADE [Suspect]
     Route: 042
  3. REMICADE [Suspect]
     Route: 042
  4. REMICADE [Suspect]
     Route: 042
  5. REMICADE [Suspect]
     Route: 042
  6. REMICADE [Suspect]
     Route: 042
  7. REMICADE [Suspect]
     Indication: RHEUMATOID ARTHRITIS
     Route: 042
  8. PLAQUENIL [Concomitant]
     Dosage: SUNDAY
  9. PLAQUENIL [Concomitant]
     Dosage: MONDAY-SATURDAY.
  10. METHOTREXATE [Concomitant]
  11. WELLBUTRIN [Concomitant]
  12. MULTIVITAMIN [Concomitant]
  13. MULTIVITAMIN [Concomitant]
  14. MULTIVITAMIN [Concomitant]
  15. MULTIVITAMIN [Concomitant]
  16. MULTIVITAMIN [Concomitant]
  17. MULTIVITAMIN [Concomitant]
  18. MULTIVITAMIN [Concomitant]
  19. MULTIVITAMIN [Concomitant]
  20. PREDNISONE [Concomitant]
     Route: 049
  21. PREDNISONE [Concomitant]
     Route: 049
  22. PREDNISONE [Concomitant]
     Dosage: TAPERING DOSE
     Route: 049
  23. FOLIC ACID [Concomitant]
  24. SULFASALAZINE [Concomitant]

REACTIONS (4)
  - INFUSION RELATED REACTION [None]
  - PYREXIA [None]
  - SYSTEMIC LUPUS ERYTHEMATOSUS [None]
  - THERAPEUTIC RESPONSE DECREASED [None]
